FAERS Safety Report 20224478 (Version 1)
Quarter: 2021Q4

REPORT INFORMATION
  Report Type: Spontaneous
  Country: CN (occurrence: CN)
  Receive Date: 20211223
  Receipt Date: 20211223
  Transmission Date: 20220303
  Serious: Yes (Other)
  Sender: FDA-Public Use
  Company Number: CN-ALLERGAN-2143578US

PATIENT
  Sex: Male

DRUGS (4)
  1. OZURDEX [Suspect]
     Active Substance: DEXAMETHASONE
     Indication: Vogt-Koyanagi-Harada disease
     Dosage: 0.7 MG, SINGLE
     Route: 031
  2. CORTICOSTEROID NOS [Concomitant]
     Active Substance: CORTICOSTEROID NOS
     Indication: Vogt-Koyanagi-Harada disease
     Route: 047
  3. CORTICOSTEROID NOS [Concomitant]
     Active Substance: CORTICOSTEROID NOS
     Indication: Vogt-Koyanagi-Harada disease
     Route: 048
  4. CYCLOSPORINE [Concomitant]
     Active Substance: CYCLOSPORINE
     Indication: Vogt-Koyanagi-Harada disease
     Route: 048

REACTIONS (3)
  - Implant site extravasation [Recovered/Resolved]
  - Hypotony of eye [Recovering/Resolving]
  - Visual acuity reduced [Recovering/Resolving]
